FAERS Safety Report 4893668-7 (Version None)
Quarter: 2006Q1

REPORT INFORMATION
  Report Type: 
  Country: None (occurrence: None)
  Receive Date: 20060127
  Receipt Date: 20060124
  Transmission Date: 20060701
  Serious: Yes (Other)
  Sender: FDA-Public Use
  Company Number: US-GLAXOSMITHKLINE-A0590835A

PATIENT
  Age: 47 Year
  Sex: Female

DRUGS (2)
  1. NICORETTE (MINT) [Suspect]
     Dosage: 2MG SEE DOSAGE TEXT
     Route: 002
  2. NO CONCURRENT MEDICATIONS [Concomitant]

REACTIONS (3)
  - BURSITIS [None]
  - DEPENDENCE [None]
  - OVERDOSE [None]
